FAERS Safety Report 9466272 (Version 2)
Quarter: 2013Q4

REPORT INFORMATION
  Report Type: Spontaneous
  Country: US (occurrence: US)
  Receive Date: 20130820
  Receipt Date: 20131104
  Transmission Date: 20140711
  Serious: No
  Sender: FDA-Public Use
  Company Number: US-PFIZER INC-2013237379

PATIENT
  Age: 72 Year
  Sex: Female
  Weight: 64.4 kg

DRUGS (1)
  1. CYTOMEL [Suspect]
     Indication: THYROID DISORDER
     Dosage: 2.5 UG, 1X/DAY
     Route: 048
     Dates: start: 201306, end: 20130813

REACTIONS (3)
  - Arthralgia [Unknown]
  - Limb discomfort [Unknown]
  - Tendon disorder [Unknown]
